FAERS Safety Report 20403510 (Version 1)
Quarter: 2022Q1

REPORT INFORMATION
  Report Type: Spontaneous
  Country: US (occurrence: US)
  Receive Date: 20220131
  Receipt Date: 20220131
  Transmission Date: 20220423
  Serious: No
  Sender: FDA-Public Use
  Company Number: US-drreddys-SPO/USA/22/0146244

PATIENT
  Age: 18 Year
  Sex: Male

DRUGS (1)
  1. ZENATANE [Suspect]
     Active Substance: ISOTRETINOIN
     Indication: Product used for unknown indication
     Dosage: RMA ISSUE DATE: 30 SEPTEMBER 2021 12:00:00 AM, 23 DECEMBER 2021 10:44:36 AM

REACTIONS (2)
  - Loss of personal independence in daily activities [Unknown]
  - Adverse drug reaction [Unknown]
